FAERS Safety Report 4715521-1 (Version None)
Quarter: 2005Q3

REPORT INFORMATION
  Report Type: 
  Country: None (occurrence: None)
  Receive Date: 20050718
  Receipt Date: 20050706
  Transmission Date: 20060218
  Serious: Yes (Death)
  Sender: FDA-Public Use
  Company Number: US-JNJFOC-20050200880

PATIENT
  Sex: Male
  Weight: 72.58 kg

DRUGS (19)
  1. REMICADE [Suspect]
     Route: 042
  2. REMICADE [Suspect]
     Route: 042
  3. REMICADE [Suspect]
     Route: 042
  4. REMICADE [Suspect]
     Indication: RHEUMATOID ARTHRITIS
     Dosage: STARTED INFLIXIMAB
     Route: 042
  5. METHOTREXATE [Suspect]
     Dosage: WAS NOTED TO BE ON THIS DOSE IN 1995
  6. METHOTREXATE [Suspect]
     Dosage: ON METHOTREXATE AS FAR BACK AS JAN-1997
  7. PRILOSEC [Concomitant]
     Route: 048
  8. PRILOSEC [Concomitant]
     Route: 048
  9. ADVAIR DISKUS 100/50 [Concomitant]
     Route: 055
  10. ADVAIR DISKUS 100/50 [Concomitant]
     Dosage: 250/50  1 DOSE= 1 PUFF   ONCE EVERY 12 HOURS
     Route: 055
  11. ALBUTEROL [Concomitant]
     Dosage: AND PRN, VIA NEBULIZER
  12. ATROVENT [Concomitant]
     Dosage: AND PRN, VIA NEBULIZER
     Route: 055
  13. FLOMAX [Concomitant]
     Route: 048
  14. ASTELIN [Concomitant]
     Dosage: TWO DOSES= 2 SRPAYS PER EACH NOSTRIL
     Route: 055
  15. PREDNISONE [Concomitant]
     Route: 048
  16. PREDNISONE [Concomitant]
     Dosage: DURATION = ^LONGER THAN 4 YEARS^.  OFFICE NOTES INDICATE HE WAS ON PREDNISONE AS FAR BACK AS 1995.
     Route: 048
  17. THEO-DUR [Concomitant]
     Route: 048
  18. ULTRAM [Concomitant]
     Dosage: ^ONCE OR TWICE A DAY^
     Route: 048
  19. ACETAMINOPHEN [Concomitant]

REACTIONS (26)
  - ABDOMINAL DISTENSION [None]
  - ACUTE RESPIRATORY DISTRESS SYNDROME [None]
  - COAGULOPATHY [None]
  - CYTOMEGALOVIRUS INFECTION [None]
  - EXTRAVASATION BLOOD [None]
  - HAEMATOMA [None]
  - HAEMORRHAGIC DIATHESIS [None]
  - HERPES ZOSTER [None]
  - HISTOPLASMOSIS DISSEMINATED [None]
  - LUNG INFECTION PSEUDOMONAL [None]
  - PLEURAL EFFUSION [None]
  - PNEUMONIA [None]
  - PNEUMONIA CYTOMEGALOVIRAL [None]
  - POST HERPETIC NEURALGIA [None]
  - POST PROCEDURAL CELLULITIS [None]
  - POST PROCEDURAL HAEMORRHAGE [None]
  - PSEUDOMONAS INFECTION [None]
  - PULMONARY FIBROSIS [None]
  - RENAL FAILURE ACUTE [None]
  - RESPIRATORY FAILURE [None]
  - SEPSIS SYNDROME [None]
  - SEPTIC SHOCK [None]
  - SINUSITIS [None]
  - THROMBOCYTOPENIA [None]
  - THROMBOSIS [None]
  - UPPER RESPIRATORY TRACT INFECTION [None]
